FAERS Safety Report 8746590 (Version 6)
Quarter: 2016Q2

REPORT INFORMATION
  Report Type: Spontaneous
  Country: BR (occurrence: BR)
  Receive Date: 20120827
  Receipt Date: 20160421
  Transmission Date: 20160815
  Serious: Yes (Disabling, Other)
  Sender: FDA-Public Use
  Company Number: BR-SANOFI-AVENTIS-2012SA060694

PATIENT
  Age: 17 Year
  Sex: Male

DRUGS (1)
  1. ALLEGRA [Suspect]
     Active Substance: FEXOFENADINE HYDROCHLORIDE
     Indication: PRURITUS
     Route: 048
     Dates: start: 20120814, end: 20120816

REACTIONS (16)
  - Head injury [Unknown]
  - Dyspnoea [Unknown]
  - Anxiety [Unknown]
  - Headache [Unknown]
  - Suicide attempt [Unknown]
  - Psychotic disorder [Recovered/Resolved]
  - Respiratory disorder [Unknown]
  - Angioedema [Recovered/Resolved]
  - Insomnia [Unknown]
  - Throat tightness [Unknown]
  - Delirium [Unknown]
  - Heart rate increased [Unknown]
  - Injury [Unknown]
  - Somnolence [Unknown]
  - Scar [Unknown]
  - Feeling abnormal [Unknown]

NARRATIVE: CASE EVENT DATE: 20120814
